FAERS Safety Report 10151447 (Version 3)
Quarter: 2014Q4

REPORT INFORMATION
  Report Type: Report from Study
  Country: GR (occurrence: GR)
  Receive Date: 20140503
  Receipt Date: 20141224
  Transmission Date: 20150528
  Serious: Yes (Death, Life-Threatening, Hospitalization)
  Sender: FDA-Public Use
  Company Number: PHHY2014GR053291

PATIENT
  Age: 51 Year
  Sex: Female
  Weight: 47 kg

DRUGS (2)
  1. DEPREVIX [Concomitant]
     Indication: DEPRESSION
     Dosage: 150 MG, UNK
     Route: 065
     Dates: start: 2005, end: 2014
  2. GILENYA [Suspect]
     Active Substance: FINGOLIMOD HYDROCHLORIDE
     Indication: MULTIPLE SCLEROSIS
     Dosage: 0.5 MG, QD
     Route: 048
     Dates: start: 20131010, end: 201402

REACTIONS (4)
  - Hemiplegia [Fatal]
  - Coma [Fatal]
  - Loss of consciousness [Fatal]
  - Status epilepticus [Fatal]

NARRATIVE: CASE EVENT DATE: 20140203
